FAERS Safety Report 21491122 (Version 2)
Quarter: 2022Q4

REPORT INFORMATION
  Report Type: Report from Study
  Country: US (occurrence: US)
  Receive Date: 20221021
  Receipt Date: 20221024
  Transmission Date: 20230113
  Serious: Yes (Other)
  Sender: FDA-Public Use
  Company Number: US-JNJFOC-20220914994

PATIENT
  Age: 30 Year
  Sex: Female
  Weight: 103.2 kg

DRUGS (6)
  1. SELEXIPAG [Suspect]
     Active Substance: SELEXIPAG
     Indication: Pulmonary hypertension
     Dosage: 600MCG ORALLY 2 TIMES DAILY.
     Route: 048
  2. SELEXIPAG [Suspect]
     Active Substance: SELEXIPAG
     Route: 048
  3. MACITENTAN [Suspect]
     Active Substance: MACITENTAN
     Indication: Product used for unknown indication
     Route: 048
  4. SILDENAFIL CITRATE [Concomitant]
     Active Substance: SILDENAFIL CITRATE
  5. ADEMPAS [Concomitant]
     Active Substance: RIOCIGUAT
  6. ELIQUIS [Concomitant]
     Active Substance: APIXABAN

REACTIONS (11)
  - Pneumonia [Unknown]
  - Adverse event [Unknown]
  - Migraine [Unknown]
  - Malaise [Unknown]
  - Insomnia [Unknown]
  - Dyspepsia [Unknown]
  - Chest pain [Unknown]
  - Rhinorrhoea [Unknown]
  - Fatigue [Unknown]
  - Dyspnoea [Not Recovered/Not Resolved]
  - Nasal congestion [Unknown]

NARRATIVE: CASE EVENT DATE: 20220912
